FAERS Safety Report 7911745-0 (Version None)
Quarter: 2011Q4

REPORT INFORMATION
  Report Type: 
  Country: None (occurrence: None)
  Receive Date: 20111114
  Receipt Date: 20111114
  Transmission Date: 20120403
  Serious: Yes (Life-Threatening, Hospitalization)
  Sender: FDA-Public Use
  Company Number: None

PATIENT
  Age: 8 Year
  Sex: Male
  Weight: 24.493 kg

DRUGS (1)
  1. ABILIFY [Suspect]
     Indication: ATTENTION DEFICIT/HYPERACTIVITY DISORDER
     Dosage: 5MG 1/2 TAB
     Route: 048
     Dates: start: 20111031, end: 20111104

REACTIONS (4)
  - SALIVARY HYPERSECRETION [None]
  - TREMOR [None]
  - SWOLLEN TONGUE [None]
  - NEUROLEPTIC MALIGNANT SYNDROME [None]
